FAERS Safety Report 16372013 (Version 2)
Quarter: 2019Q2

REPORT INFORMATION
  Report Type: Spontaneous
  Country: US (occurrence: US)
  Receive Date: 20190530
  Receipt Date: 20190607
  Transmission Date: 20190711
  Serious: Yes (Hospitalization)
  Sender: FDA-Public Use
  Company Number: US-VERTEX PHARMACEUTICALS-2019-004774

PATIENT
  Age: 49 Year
  Sex: Male

DRUGS (15)
  1. URSODIOL. [Concomitant]
     Active Substance: URSODIOL
  2. XARELTO [Concomitant]
     Active Substance: RIVAROXABAN
  3. KALYDECO [Suspect]
     Active Substance: IVACAFTOR
     Indication: CYSTIC FIBROSIS
     Dosage: 150 MG, BID
     Route: 048
     Dates: start: 20190307
  4. LANSOPRAZOLE. [Concomitant]
     Active Substance: LANSOPRAZOLE
  5. NYSTATIN. [Concomitant]
     Active Substance: NYSTATIN
  6. ZENPEP [Concomitant]
     Active Substance: PANCRELIPASE AMYLASE\PANCRELIPASE LIPASE\PANCRELIPASE PROTEASE
  7. PULMOZYME [Concomitant]
     Active Substance: DORNASE ALFA
  8. CETIRIZINE [Concomitant]
     Active Substance: CETIRIZINE HYDROCHLORIDE
  9. LORAZEPAM. [Concomitant]
     Active Substance: LORAZEPAM
  10. CAYSTON [Concomitant]
     Active Substance: AZTREONAM
  11. OXYCODONE [Concomitant]
     Active Substance: OXYCODONE
  12. LOSARTAN. [Concomitant]
     Active Substance: LOSARTAN
  13. METOPROLOL. [Concomitant]
     Active Substance: METOPROLOL
  14. PREDNISONE. [Concomitant]
     Active Substance: PREDNISONE
  15. VENTOLIN [Concomitant]
     Active Substance: ALBUTEROL SULFATE

REACTIONS (1)
  - Infective pulmonary exacerbation of cystic fibrosis [Unknown]

NARRATIVE: CASE EVENT DATE: 20190508
